FAERS Safety Report 5872771-9 (Version None)
Quarter: 2008Q3

REPORT INFORMATION
  Report Type: 
  Country: None (occurrence: None)
  Receive Date: 20080905
  Receipt Date: 20080822
  Transmission Date: 20090109
  Serious: Yes (Hospitalization)
  Sender: FDA-Public Use
  Company Number: FR-GENENTECH-267186

PATIENT
  Sex: Male

DRUGS (2)
  1. MABTHERA [Suspect]
     Indication: ANGIOEDEMA
     Dosage: 375 MG/M2, UNK
     Route: 042
     Dates: start: 20070402
  2. PREVISCAN [Suspect]
     Indication: VENOUS THROMBOSIS
     Dosage: UNK
     Route: 048
     Dates: start: 20080324, end: 20080430

REACTIONS (1)
  - SKIN NECROSIS [None]
